FAERS Safety Report 16134276 (Version 1)
Quarter: 2019Q1

REPORT INFORMATION
  Report Type: Spontaneous
  Country: US (occurrence: US)
  Receive Date: 20190329
  Receipt Date: 20190329
  Transmission Date: 20190418
  Serious: No
  Sender: FDA-Public Use
  Company Number: US-TEVA-2019-US-1015599

PATIENT
  Age: 36 Year
  Sex: Female

DRUGS (10)
  1. VITAMIN K [Concomitant]
     Active Substance: PHYTONADIONE
  2. NATURE-THROID [Concomitant]
     Active Substance: THYROID, PORCINE
  3. AJOVY [Suspect]
     Active Substance: FREMANEZUMAB-VFRM
     Route: 058
  4. EPIPEN [Concomitant]
     Active Substance: EPINEPHRINE
  5. MAGNESIUM [Concomitant]
     Active Substance: MAGNESIUM
  6. FEVERFEW [Concomitant]
     Active Substance: FEVERFEW
  7. VITAMIN C [Concomitant]
     Active Substance: ASCORBIC ACID
  8. ZOFRAN [Concomitant]
     Active Substance: ONDANSETRON HYDROCHLORIDE
  9. NALTREXONE [Concomitant]
     Active Substance: NALTREXONE
  10. VITAMIN D [Concomitant]
     Active Substance: CHOLECALCIFEROL

REACTIONS (8)
  - Drug ineffective [Unknown]
  - Nausea [Unknown]
  - Hyperacusis [Unknown]
  - Vision blurred [Unknown]
  - Impaired work ability [Unknown]
  - Migraine [Unknown]
  - Perfume sensitivity [Unknown]
  - Photophobia [Unknown]
